FAERS Safety Report 15577598 (Version 2)
Quarter: 2020Q1

REPORT INFORMATION
  Report Type: Report from Study
  Country: GB (occurrence: GB)
  Receive Date: 20181102
  Receipt Date: 20200116
  Transmission Date: 20200409
  Serious: Yes (Hospitalization, Other)
  Sender: FDA-Public Use
  Company Number: GB-ROCHE-1817791

PATIENT
  Sex: Female

DRUGS (1)
  1. ROACTEMRA [Suspect]
     Active Substance: TOCILIZUMAB
     Indication: RHEUMATOID ARTHRITIS
     Route: 058
     Dates: start: 20150105

REACTIONS (6)
  - Visual impairment [Unknown]
  - Lower respiratory tract infection [Unknown]
  - Infection [Unknown]
  - Pleurisy [Unknown]
  - Malaise [Unknown]
  - Influenza [Unknown]
